FAERS Safety Report 20580007 (Version 1)
Quarter: 2022Q1

REPORT INFORMATION
  Report Type: Report from Study
  Country: CO (occurrence: CO)
  Receive Date: 20220310
  Receipt Date: 20220310
  Transmission Date: 20220424
  Serious: Yes (Hospitalization)
  Sender: FDA-Public Use
  Company Number: CO-JNJFOC-20220311269

PATIENT
  Age: 44 Year
  Sex: Female
  Weight: 62 kg

DRUGS (1)
  1. SIMPONI [Suspect]
     Active Substance: GOLIMUMAB
     Indication: Ankylosing spondylitis
     Dosage: THE MOST RECENT ADMINISTRATION PERFORMED ON 22-JAN-2022.
     Route: 058
     Dates: start: 20130930, end: 20220122

REACTIONS (2)
  - Liver abscess [Recovering/Resolving]
  - Colitis [Recovering/Resolving]

NARRATIVE: CASE EVENT DATE: 20220201
